FAERS Safety Report 17874028 (Version 5)
Quarter: 2021Q2

REPORT INFORMATION
  Report Type: Spontaneous
  Country: BR (occurrence: BR)
  Receive Date: 20200609
  Receipt Date: 20210409
  Transmission Date: 20210717
  Serious: Yes (Other)
  Sender: FDA-Public Use
  Company Number: BR-GLAXOSMITHKLINE-BR2019AMR157044

PATIENT
  Age: 63 Year
  Sex: Female

DRUGS (5)
  1. CLAVULIN [Suspect]
     Active Substance: AMOXICILLIN\CLAVULANATE POTASSIUM
     Indication: NASAL CONGESTION
  2. NUCALA [Suspect]
     Active Substance: MEPOLIZUMAB
     Indication: ASTHMA
     Dosage: 100 MG
     Dates: start: 20190716
  3. CLAVULIN [Suspect]
     Active Substance: AMOXICILLIN\CLAVULANATE POTASSIUM
     Indication: FATIGUE
  4. CLAVULIN [Suspect]
     Active Substance: AMOXICILLIN\CLAVULANATE POTASSIUM
     Indication: SINUSITIS
     Dosage: UNK
  5. CLAVULIN [Suspect]
     Active Substance: AMOXICILLIN\CLAVULANATE POTASSIUM
     Indication: EATING DISORDER

REACTIONS (16)
  - Eosinophil count abnormal [Unknown]
  - Dyspnoea [Not Recovered/Not Resolved]
  - Wheezing [Not Recovered/Not Resolved]
  - Eating disorder [Unknown]
  - Drug ineffective [Unknown]
  - Asthmatic crisis [Not Recovered/Not Resolved]
  - Diabetes mellitus [Unknown]
  - Ear pain [Not Recovered/Not Resolved]
  - Dysgeusia [Recovering/Resolving]
  - Fatigue [Unknown]
  - Therapy interrupted [Unknown]
  - Product dose omission issue [Unknown]
  - Inappropriate schedule of product administration [Unknown]
  - Nasal congestion [Unknown]
  - Headache [Recovering/Resolving]
  - Sinusitis [Unknown]

NARRATIVE: CASE EVENT DATE: 202007
